FAERS Safety Report 8275333-1 (Version None)
Quarter: 2012Q2

REPORT INFORMATION
  Report Type: 
  Country: None (occurrence: None)
  Receive Date: 20120411
  Receipt Date: 20120403
  Transmission Date: 20120825
  Serious: Yes (Hospitalization)
  Sender: FDA-Public Use
  Company Number: PHHY2012IT011845

PATIENT
  Sex: Female

DRUGS (2)
  1. EXJADE [Suspect]
     Indication: IRON OVERLOAD
     Dosage: 23 MG/KG, DAILY
     Route: 048
     Dates: start: 20090101, end: 20120129
  2. D-ALPHA TOCOPHEROL [Concomitant]

REACTIONS (2)
  - GASTRIC MUCOSAL LESION [None]
  - HAEMATEMESIS [None]
